FAERS Safety Report 4284939-6 (Version None)
Quarter: 2004Q1

REPORT INFORMATION
  Report Type: 
  Country: None (occurrence: None)
  Receive Date: 20040102
  Receipt Date: 20040120
  Transmission Date: 20041129
  Serious: Yes (Hospitalization, Other)
  Sender: FDA-Public Use
  Company Number: US-JNJFOC-20031104252

PATIENT
  Age: 56 Year
  Sex: Female
  Weight: 44.6793 kg

DRUGS (2)
  1. REMICADE [Suspect]
     Indication: RHEUMATOID ARTHRITIS
     Dosage: 200 MG, INTRAVENOUS
     Route: 042
     Dates: start: 20030903
  2. REMICADE [Suspect]

REACTIONS (2)
  - DEEP VEIN THROMBOSIS [None]
  - ROAD TRAFFIC ACCIDENT [None]
